FAERS Safety Report 20491994 (Version 1)
Quarter: 2022Q1

REPORT INFORMATION
  Report Type: Spontaneous
  Country: GR (occurrence: GR)
  Receive Date: 20220218
  Receipt Date: 20220218
  Transmission Date: 20220424
  Serious: Yes (Death)
  Sender: FDA-Public Use
  Company Number: GR-CELGENE-GRC-20220204805

PATIENT
  Age: 58 Year
  Sex: Female

DRUGS (18)
  1. POMALIDOMIDE [Suspect]
     Active Substance: POMALIDOMIDE
     Indication: Plasma cell myeloma
     Route: 048
     Dates: start: 20181018, end: 20210721
  2. DARATUMUMAB [Suspect]
     Active Substance: DARATUMUMAB
     Indication: Plasma cell myeloma
     Route: 058
     Dates: start: 20181018, end: 20210701
  3. DEXAMETHASONE [Concomitant]
     Active Substance: DEXAMETHASONE
     Indication: Plasma cell myeloma
     Dosage: 20 MILLIGRAM
     Route: 048
     Dates: start: 20181018, end: 20210722
  4. FILGRASTIM [Concomitant]
     Active Substance: FILGRASTIM
     Indication: Prophylaxis
     Dosage: 48 IU (INTERNATIONAL UNIT)
     Route: 058
     Dates: start: 20181018, end: 20181107
  5. FILGRASTIM [Concomitant]
     Active Substance: FILGRASTIM
     Dosage: 6.8571 IU (INTERNATIONAL UNIT)
     Route: 065
     Dates: start: 20181108, end: 20181226
  6. FILGRASTIM [Concomitant]
     Active Substance: FILGRASTIM
     Dosage: 48 IU (INTERNATIONAL UNIT)
     Route: 058
     Dates: start: 20190307, end: 20190320
  7. FILGRASTIM [Concomitant]
     Active Substance: FILGRASTIM
     Dosage: 48 IU (INTERNATIONAL UNIT)
     Route: 058
     Dates: start: 20190321, end: 20190403
  8. FILGRASTIM [Concomitant]
     Active Substance: FILGRASTIM
     Dosage: 48 IU (INTERNATIONAL UNIT)
     Route: 058
     Dates: start: 20190404, end: 20190501
  9. FILGRASTIM [Concomitant]
     Active Substance: FILGRASTIM
     Dosage: 48 IU (INTERNATIONAL UNIT)
     Route: 058
     Dates: start: 20190502, end: 20191111
  10. FILGRASTIM [Concomitant]
     Active Substance: FILGRASTIM
     Dosage: 48 IU (INTERNATIONAL UNIT)
     Route: 058
     Dates: start: 20191212, end: 20200311
  11. FILGRASTIM [Concomitant]
     Active Substance: FILGRASTIM
     Dosage: 48 IU (INTERNATIONAL UNIT)
     Route: 058
     Dates: start: 20200312, end: 20210210
  12. FILGRASTIM [Concomitant]
     Active Substance: FILGRASTIM
     Dosage: 48 IU (INTERNATIONAL UNIT)
     Route: 058
     Dates: start: 20210211
  13. VALTREX [Concomitant]
     Active Substance: VALACYCLOVIR HYDROCHLORIDE
     Indication: Prophylaxis
     Dosage: 500 MILLIGRAM
     Route: 048
     Dates: start: 20150928
  14. ASPIRIN [Concomitant]
     Active Substance: ASPIRIN
     Indication: Prophylaxis
     Dosage: 100 MILLIGRAM
     Route: 048
     Dates: start: 20181010
  15. RETACRIT [Concomitant]
     Active Substance: EPOETIN ALFA-EPBX
     Indication: Product used for unknown indication
     Dosage: 4000 MILLIGRAM
     Route: 058
     Dates: start: 20190110, end: 20190206
  16. RETACRIT [Concomitant]
     Active Substance: EPOETIN ALFA-EPBX
     Dosage: 4000 MILLIGRAM
     Route: 058
     Dates: start: 20190207, end: 20190220
  17. RETACRIT [Concomitant]
     Active Substance: EPOETIN ALFA-EPBX
     Dosage: 4000 MILLIGRAM
     Route: 058
     Dates: start: 20190221, end: 20200408
  18. RETACRIT [Concomitant]
     Active Substance: EPOETIN ALFA-EPBX
     Dosage: 4000 MILLIGRAM
     Route: 058
     Dates: start: 20200408

REACTIONS (1)
  - Cerebrovascular accident [Fatal]

NARRATIVE: CASE EVENT DATE: 20210828
